FAERS Safety Report 8508153-0 (Version None)
Quarter: 2012Q3

REPORT INFORMATION
  Report Type: 
  Country: None (occurrence: None)
  Receive Date: 20120709
  Receipt Date: 20120709
  Transmission Date: 20120928
  Serious: No
  Sender: FDA-Public Use
  Company Number: None

PATIENT
  Sex: Female

DRUGS (1)
  1. ACETAMINOPHEN AND CODEINE PHOSPHATE [Suspect]
     Dosage: LIQUID BY MOUTH
     Route: 048

REACTIONS (2)
  - MEDICATION ERROR [None]
  - DRUG DISPENSING ERROR [None]
